FAERS Safety Report 4494495-5 (Version None)
Quarter: 2004Q4

REPORT INFORMATION
  Report Type: 
  Country: None (occurrence: None)
  Receive Date: 20041102
  Receipt Date: 20040923
  Transmission Date: 20050328
  Serious: Yes (Hospitalization)
  Sender: FDA-Public Use
  Company Number: 2004AP04950

PATIENT
  Age: 81 Year
  Sex: Female

DRUGS (5)
  1. BUDESONIDE + FORMOTEROL (SYMBICORT) [Suspect]
     Indication: PNEUMONIA
     Dosage: 2 PUFF PRN IH
     Route: 055
     Dates: end: 20040910
  2. BUDESONIDE + FORMOTEROL (SYMBICORT) [Suspect]
     Indication: PNEUMONIA
     Dosage: 2 PUFF PRN IH
     Route: 055
     Dates: end: 20040910
  3. BRICANYL [Suspect]
     Indication: PNEUMONIA
     Dosage: 500 UG PRN IH
     Route: 055
  4. BRICANYL [Suspect]
     Indication: PNEUMONIA
     Dosage: 500 UG PRN IH
     Route: 055
     Dates: end: 20040910
  5. THYROXINE ^APS^ [Concomitant]

REACTIONS (10)
  - ABDOMINAL PAIN UPPER [None]
  - DEAFNESS [None]
  - HEADACHE [None]
  - HEART RATE IRREGULAR [None]
  - HEPATOMEGALY [None]
  - INSOMNIA [None]
  - MUSCLE TWITCHING [None]
  - NAUSEA [None]
  - PRURITUS [None]
  - VISUAL DISTURBANCE [None]
